FAERS Safety Report 15322523 (Version 2)
Quarter: 2018Q4

REPORT INFORMATION
  Report Type: Spontaneous
  Country: US (occurrence: US)
  Receive Date: 20180827
  Receipt Date: 20181019
  Transmission Date: 20190204
  Serious: Yes (Hospitalization, Disabling, Other)
  Sender: FDA-Public Use
  Company Number: US-B.I. PHARMACEUTICALS,INC./RIDGEFIELD-2018-BI-041944

PATIENT
  Sex: Female

DRUGS (1)
  1. SPIRIVA [Suspect]
     Active Substance: TIOTROPIUM BROMIDE MONOHYDRATE
     Indication: PRODUCT USED FOR UNKNOWN INDICATION
     Route: 055
     Dates: start: 201805

REACTIONS (9)
  - Myocardial infarction [Recovered/Resolved]
  - Housebound [Unknown]
  - Myocardial infarction [Recovered/Resolved]
  - Visual impairment [Unknown]
  - Lung disorder [Unknown]
  - Apparent death [Unknown]
  - Disability [Unknown]
  - Impaired driving ability [Unknown]
  - Dyspnoea [Unknown]

NARRATIVE: CASE EVENT DATE: 20180627
